FAERS Safety Report 24168339 (Version 1)
Quarter: 2024Q3

REPORT INFORMATION
  Report Type: Spontaneous
  Country: PT (occurrence: PT)
  Receive Date: 20240802
  Receipt Date: 20240802
  Transmission Date: 20241016
  Serious: Yes (Other)
  Sender: FRESENIUS KABI
  Company Number: PT-009507513-2407PRT011569

PATIENT
  Age: 71 Year
  Sex: Female

DRUGS (3)
  1. PACLITAXEL [Suspect]
     Active Substance: PACLITAXEL
     Indication: Triple negative breast cancer
     Dosage: UNK UNK, QW
     Dates: start: 202309
  2. CARBOPLATIN [Suspect]
     Active Substance: CARBOPLATIN
     Indication: Triple negative breast cancer
     Dosage: UNK UNK, QW
     Dates: start: 202309
  3. PEMBROLIZUMAB [Suspect]
     Active Substance: PEMBROLIZUMAB
     Indication: Triple negative breast cancer
     Dosage: EVERY 3 WEEKS?FOA - SOLUTION FOR INJECTION
     Dates: start: 202309

REACTIONS (4)
  - Immune-mediated hepatitis [Recovering/Resolving]
  - Hepatotoxicity [Recovering/Resolving]
  - Diabetes mellitus [Recovering/Resolving]
  - Hepatic steatosis [Unknown]
